FAERS Safety Report 8712053 (Version 4)
Quarter: 2020Q4

REPORT INFORMATION
  Report Type: Spontaneous
  Country: ES (occurrence: ES)
  Receive Date: 20120807
  Receipt Date: 20201021
  Transmission Date: 20210114
  Serious: Yes (Hospitalization, Other)
  Sender: FDA-Public Use
  Company Number: PHHY2012ES066441

PATIENT
  Age: 47 Year
  Sex: Female

DRUGS (6)
  1. OMEPRAZOLE. [Suspect]
     Active Substance: OMEPRAZOLE
     Indication: PEPTIC ULCER HELICOBACTER
  2. CLARITHROMYCIN. [Suspect]
     Active Substance: CLARITHROMYCIN
     Indication: PEPTIC ULCER HELICOBACTER
  3. AMOXICILLIN. [Suspect]
     Active Substance: AMOXICILLIN
     Indication: HELICOBACTER INFECTION
     Dosage: 1 G
     Route: 065
  4. OMEPRAZOLE. [Suspect]
     Active Substance: OMEPRAZOLE
     Indication: HELICOBACTER INFECTION
     Dosage: 40 MG
     Route: 065
  5. CLARITHROMYCIN. [Suspect]
     Active Substance: CLARITHROMYCIN
     Indication: HELICOBACTER INFECTION
     Dosage: 500 MG, BID
     Route: 065
  6. AMOXICILLIN. [Suspect]
     Active Substance: AMOXICILLIN
     Indication: PEPTIC ULCER HELICOBACTER

REACTIONS (16)
  - Delusion of grandeur [Recovered/Resolved]
  - Tangentiality [Recovered/Resolved]
  - Mood altered [Not Recovered/Not Resolved]
  - Insomnia [Recovered/Resolved]
  - Psychomotor hyperactivity [Recovered/Resolved]
  - Energy increased [Unknown]
  - Mania [Recovering/Resolving]
  - Thinking abnormal [Recovering/Resolving]
  - Psychotic disorder [Recovering/Resolving]
  - Hypomania [Not Recovered/Not Resolved]
  - Behaviour disorder [Recovered/Resolved]
  - Tachyphrenia [Recovering/Resolving]
  - Irritability [Recovered/Resolved]
  - Bipolar I disorder [Recovered/Resolved]
  - Pressure of speech [Recovered/Resolved]
  - Euphoric mood [Recovering/Resolving]
